FAERS Safety Report 6067205-8 (Version None)
Quarter: 2009Q1

REPORT INFORMATION
  Report Type: 
  Country: None (occurrence: None)
  Receive Date: 20090205
  Receipt Date: 20090126
  Transmission Date: 20090719
  Serious: Yes (Hospitalization)
  Sender: FDA-Public Use
  Company Number: PHHY2008FR30101

PATIENT
  Sex: Female

DRUGS (3)
  1. FRACTAL [Suspect]
     Dosage: 20 MG, QD
     Route: 048
     Dates: start: 20050701, end: 20080812
  2. SOPROL [Concomitant]
     Indication: TACHYCARDIA PAROXYSMAL
     Dosage: UNK
     Dates: start: 19950101
  3. HEMIGOXINE NATIVELLE [Concomitant]
     Indication: TACHYCARDIA PAROXYSMAL
     Dosage: UNK
     Dates: start: 19950101

REACTIONS (9)
  - ALANINE AMINOTRANSFERASE INCREASED [None]
  - ARTHROPOD BITE [None]
  - ASPARTATE AMINOTRANSFERASE INCREASED [None]
  - BLOOD CREATINE PHOSPHOKINASE INCREASED [None]
  - CELL DEATH [None]
  - DERMATOMYOSITIS [None]
  - ERYTHEMA [None]
  - FATIGUE [None]
  - SKIN HYPERTROPHY [None]
